FAERS Safety Report 12264442 (Version 1)
Quarter: 2016Q2

REPORT INFORMATION
  Report Type: Spontaneous
  Country: US (occurrence: US)
  Receive Date: 20160413
  Receipt Date: 20160413
  Transmission Date: 20160815
  Serious: No
  Sender: FDA-Public Use
  Company Number: US-JNJFOC-20160310573

PATIENT
  Age: 51 Year
  Sex: Female
  Weight: 58.97 kg

DRUGS (2)
  1. WOMENS ROGAINE [Suspect]
     Active Substance: MINOXIDIL
     Route: 061
  2. WOMENS ROGAINE [Suspect]
     Active Substance: MINOXIDIL
     Indication: HAIR INJURY
     Route: 061

REACTIONS (4)
  - Wrong technique in product usage process [Recovering/Resolving]
  - Product use issue [Recovering/Resolving]
  - Hair growth abnormal [Recovering/Resolving]
  - Off label use [Recovering/Resolving]
